FAERS Safety Report 12663308 (Version 2)
Quarter: 2016Q3

REPORT INFORMATION
  Report Type: Spontaneous
  Country: BR (occurrence: BR)
  Receive Date: 20160818
  Receipt Date: 20160927
  Transmission Date: 20161109
  Serious: Yes (Hospitalization)
  Sender: FDA-Public Use
  Company Number: PHHY2016BR111499

PATIENT
  Sex: Male

DRUGS (2)
  1. DIOVAN HCT [Suspect]
     Active Substance: HYDROCHLOROTHIAZIDE\VALSARTAN
     Dosage: 1.5 DF, UNK (HCT 12.5 MG, VALSARTAN 320 MG)
     Route: 065
  2. DIOVAN HCT [Suspect]
     Active Substance: HYDROCHLOROTHIAZIDE\VALSARTAN
     Indication: PRODUCT USED FOR UNKNOWN INDICATION
     Dosage: (HCT 12.5 MG, VALSARTAN 160 MG)
     Route: 065

REACTIONS (4)
  - Malaise [Unknown]
  - Wrong technique in product usage process [Unknown]
  - Hypertension [Unknown]
  - Dizziness [Unknown]
